FAERS Safety Report 5600326-X (Version None)
Quarter: 2007Q4

REPORT INFORMATION
  Report Type: 
  Country: None (occurrence: None)
  Receive Date: 20071227
  Receipt Date: 20061123
  Transmission Date: 20080405
  Serious: Yes (Hospitalization)
  Sender: FDA-Public Use
  Company Number: 2006S1000277

PATIENT
  Age: 42 Year
  Sex: Male

DRUGS (2)
  1. SORIATANE [Suspect]
     Indication: DERMATITIS
     Dosage: 35 MG;QD;PO  : 25MG;QD;PO
     Route: 048
     Dates: start: 20060101
  2. SORIATANE [Suspect]
     Indication: DERMATITIS
     Dosage: 35 MG;QD;PO  : 25MG;QD;PO
     Route: 048
     Dates: start: 20060101

REACTIONS (3)
  - ALANINE AMINOTRANSFERASE INCREASED [None]
  - HYPERCHOLESTEROLAEMIA [None]
  - HYPERTRIGLYCERIDAEMIA [None]
